FAERS Safety Report 24253473 (Version 4)
Quarter: 2024Q4

REPORT INFORMATION
  Report Type: Spontaneous
  Country: US (occurrence: US)
  Receive Date: 20240827
  Receipt Date: 20241023
  Transmission Date: 20250115
  Serious: No
  Sender: PFIZER
  Company Number: US-PFIZER INC-202400238543

PATIENT
  Age: 12 Year
  Sex: Female
  Weight: 88.45 kg

DRUGS (1)
  1. GENOTROPIN [Suspect]
     Active Substance: SOMATROPIN
     Indication: Prader-Willi syndrome
     Dosage: 0.6 MG, DAILY, ONE TIME IN THE EVENING, 7 DAYS A WEEK
     Dates: start: 202307

REACTIONS (1)
  - Device defective [Unknown]
